FAERS Safety Report 8369163-X (Version None)
Quarter: 2012Q1

REPORT INFORMATION
  Report Type: 
  Country: None (occurrence: None)
  Receive Date: 20120323
  Receipt Date: 20111120
  Transmission Date: 20120608
  Serious: Yes (Other)
  Sender: FDA-Public Use
  Company Number: 163-21880-11112965

PATIENT
  Age: 61 Year
  Sex: Female
  Weight: 131.1 kg

DRUGS (2)
  1. REVLIMID [Suspect]
     Indication: MULTIPLE MYELOMA
     Dosage: 25 MG, 1 IN 1 D, PO  : 5 MG PO
     Route: 048
     Dates: start: 20110217
  2. REVLIMID [Suspect]
     Indication: MULTIPLE MYELOMA
     Dosage: 25 MG, 1 IN 1 D, PO  : 5 MG PO
     Route: 048
     Dates: start: 20110601

REACTIONS (1)
  - DISEASE PROGRESSION [None]
